FAERS Safety Report 24363421 (Version 1)
Quarter: 2024Q3

REPORT INFORMATION
  Report Type: Report from Study
  Country: CA (occurrence: CA)
  Receive Date: 20240925
  Receipt Date: 20240925
  Transmission Date: 20241016
  Serious: Yes (Other)
  Sender: SAMSUNG BIOEPIS
  Company Number: CA-SAMSUNG BIOEPIS-SB-2024-26459

PATIENT
  Age: 30 Year
  Sex: Male
  Weight: 88.45 kg

DRUGS (5)
  1. HADLIMA [Suspect]
     Active Substance: ADALIMUMAB-BWWD
     Indication: Crohn^s disease
     Dosage: 40 MG/0.8 ML;
     Dates: start: 20230823
  2. HADLIMA [Suspect]
     Active Substance: ADALIMUMAB-BWWD
     Dosage: 40 MG/0.4 ML;
     Route: 058
     Dates: start: 20230823
  3. TRINTELLIX [Concomitant]
     Active Substance: VORTIOXETINE HYDROBROMIDE
     Indication: Product used for unknown indication
  4. DEXTRIN [Concomitant]
     Active Substance: ICODEXTRIN
     Indication: Product used for unknown indication
  5. PANTOPRAZOLE [Concomitant]
     Active Substance: PANTOPRAZOLE
     Indication: Product used for unknown indication

REACTIONS (14)
  - Pneumothorax [Unknown]
  - Infrequent bowel movements [Unknown]
  - Stress [Unknown]
  - Muscle atrophy [Unknown]
  - Weight decreased [Not Recovered/Not Resolved]
  - Malabsorption [Unknown]
  - Abnormal faeces [Unknown]
  - Mental fatigue [Not Recovered/Not Resolved]
  - Inflammatory marker increased [Not Recovered/Not Resolved]
  - Decreased appetite [Unknown]
  - Fatigue [Not Recovered/Not Resolved]
  - Abdominal pain [Unknown]
  - Therapeutic product effect decreased [Unknown]
  - Therapeutic response shortened [Unknown]
